FAERS Safety Report 4870467-3 (Version None)
Quarter: 2006Q1

REPORT INFORMATION
  Report Type: 
  Country: None (occurrence: None)
  Receive Date: 20060103
  Receipt Date: 20051219
  Transmission Date: 20060701
  Serious: Yes (Other)
  Sender: FDA-Public Use
  Company Number: CHWYE100331OCT05

PATIENT
  Age: 47 Year
  Sex: Male
  Weight: 110 kg

DRUGS (3)
  1. ENBREL [Suspect]
     Indication: DRUG USE FOR UNKNOWN INDICATION
     Dosage: UNKNOWN
  2. IBUPROFEN [Concomitant]
     Dosage: 800 TO 1600 MG/D
     Route: 048
  3. METHOTREXATE [Concomitant]

REACTIONS (1)
  - CARDIAC FAILURE [None]
